FAERS Safety Report 4289049-X (Version None)
Quarter: 2004Q1

REPORT INFORMATION
  Report Type: 
  Country: None (occurrence: None)
  Receive Date: 20040209
  Receipt Date: 20040204
  Transmission Date: 20041129
  Serious: Yes (Hospitalization)
  Sender: FDA-Public Use
  Company Number: WAES 0402SWE00003

PATIENT
  Age: 52 Year
  Sex: Male

DRUGS (5)
  1. ACETAMINOPHEN AND CODEINE PHOSPHATE [Concomitant]
  2. FOSAMAX [Suspect]
     Indication: OSTEOPOROSIS
     Route: 048
     Dates: start: 20030303, end: 20031101
  3. CALCIUM CARBONATE AND CHOLECALCIFEROL [Concomitant]
  4. DIAZEPAM [Concomitant]
  5. FLUNITRAZEPAM [Concomitant]

REACTIONS (3)
  - GASTROINTESTINAL HAEMORRHAGE [None]
  - RASH [None]
  - VISION BLURRED [None]
